FAERS Safety Report 8997993 (Version 1)
Quarter: 2013Q1

REPORT INFORMATION
  Report Type: Report from Study
  Country: ES (occurrence: ES)
  Receive Date: 20130104
  Receipt Date: 20130104
  Transmission Date: 20140127
  Serious: Yes (Other)
  Sender: FDA-Public Use
  Company Number: ES-ROCHE-1175106

PATIENT
  Age: 64 Year
  Sex: Male

DRUGS (4)
  1. CLONAZEPAM [Suspect]
     Indication: NEURALGIA
     Route: 048
     Dates: start: 20110523
  2. DULOXETINE [Suspect]
     Indication: NEURALGIA
     Route: 048
     Dates: start: 20110523
  3. LYRICA [Suspect]
     Indication: NEURALGIA
     Route: 048
     Dates: start: 20110523
  4. TARGIN [Suspect]
     Indication: OSTEOARTHRITIS
     Route: 048
     Dates: start: 20080314

REACTIONS (2)
  - Erectile dysfunction [Not Recovered/Not Resolved]
  - Retrograde ejaculation [Not Recovered/Not Resolved]
